FAERS Safety Report 8198394-7 (Version None)
Quarter: 2012Q1

REPORT INFORMATION
  Report Type: 
  Country: None (occurrence: None)
  Receive Date: 20120309
  Receipt Date: 20111130
  Transmission Date: 20120608
  Serious: No
  Sender: FDA-Public Use
  Company Number: US-AMGEN-USASP2011063593

PATIENT
  Age: 87 Year
  Sex: Female

DRUGS (6)
  1. PLAVIX [Concomitant]
     Dosage: UNK
  2. PROLIA [Suspect]
     Indication: OSTEOPOROSIS POSTMENOPAUSAL
     Dosage: 60 MG, Q6MO
     Dates: start: 20111101
  3. AMLODIPINE [Concomitant]
     Dosage: UNK
  4. SYNTHROID [Concomitant]
     Dosage: UNK
  5. RESTASIS [Concomitant]
     Dosage: UNK
  6. PROPYLENE GLYCOL [Concomitant]
     Dosage: UNK

REACTIONS (5)
  - GASTRITIS [None]
  - BLADDER DISORDER [None]
  - JOINT STIFFNESS [None]
  - ARTHRALGIA [None]
  - ABDOMINAL PAIN UPPER [None]
